FAERS Safety Report 10569600 (Version 5)
Quarter: 2015Q3

REPORT INFORMATION
  Report Type: Report from Study
  Country: CA (occurrence: CA)
  Receive Date: 20141106
  Receipt Date: 20150915
  Transmission Date: 20151125
  Serious: Yes (Hospitalization, Other)
  Sender: FDA-Public Use
  Company Number: CA-ROCHE-1484951

PATIENT
  Age: 71 Year
  Sex: Male

DRUGS (10)
  1. ELAVIL [Concomitant]
     Active Substance: AMITRIPTYLINE HYDROCHLORIDE
  2. CRESTOR [Concomitant]
     Active Substance: ROSUVASTATIN CALCIUM
     Indication: BLOOD PRESSURE MEASUREMENT
  3. XELODA [Suspect]
     Active Substance: CAPECITABINE
     Indication: BASAL CELL CARCINOMA
     Route: 065
     Dates: start: 20121002, end: 20130410
  4. GABAPENTIN. [Concomitant]
     Active Substance: GABAPENTIN
  5. CILOXAN [Concomitant]
     Active Substance: CIPROFLOXACIN HYDROCHLORIDE
     Route: 031
  6. CISPLATIN. [Suspect]
     Active Substance: CISPLATIN
     Indication: BASAL CELL CARCINOMA
     Route: 065
     Dates: start: 20121002, end: 20130410
  7. CARBAMAZEPINE. [Concomitant]
     Active Substance: CARBAMAZEPINE
  8. ERIVEDGE [Suspect]
     Active Substance: VISMODEGIB
     Indication: BASAL CELL CARCINOMA
     Route: 048
     Dates: start: 201501
  9. TELMISARTAN. [Concomitant]
     Active Substance: TELMISARTAN
     Indication: BLOOD PRESSURE MEASUREMENT
  10. ARTHOTEC FORTE [Concomitant]
     Indication: ARTHRITIS

REACTIONS (21)
  - Dehydration [Unknown]
  - White blood cell count decreased [Unknown]
  - Lymphocyte count decreased [Unknown]
  - Aspartate aminotransferase decreased [Unknown]
  - Renal disorder [Unknown]
  - Aortic valve stenosis [Unknown]
  - Neutrophil count increased [Unknown]
  - Monocyte count increased [Unknown]
  - Bundle branch block bilateral [Not Recovered/Not Resolved]
  - Aortic valve incompetence [Unknown]
  - Off label use [Unknown]
  - Blood pressure systolic increased [Unknown]
  - Orthostatic hypotension [Unknown]
  - Visual acuity reduced [Unknown]
  - Haemoglobin decreased [Unknown]
  - Syncope [Recovered/Resolved]
  - Culture urine positive [Unknown]
  - Troponin increased [Unknown]
  - Red blood cell count decreased [Unknown]
  - Haematocrit decreased [Unknown]
  - Diarrhoea [Recovered/Resolved]

NARRATIVE: CASE EVENT DATE: 2015
